FAERS Safety Report 15541370 (Version 3)
Quarter: 2018Q4

REPORT INFORMATION
  Report Type: Spontaneous
  Country: BR (occurrence: BR)
  Receive Date: 20181023
  Receipt Date: 20181105
  Transmission Date: 20190205
  Serious: Yes (Other)
  Sender: FDA-Public Use
  Company Number: BR-PFIZER INC-2014215070

PATIENT
  Age: 70 Year
  Sex: Female

DRUGS (4)
  1. LORAX [Suspect]
     Active Substance: LORAZEPAM
     Indication: HYPERTENSION
  2. LORAX [Suspect]
     Active Substance: LORAZEPAM
     Indication: DEPRESSION
     Dosage: 2 TABLETS OF 1 MG PER DAY
     Route: 048
     Dates: start: 2004
  3. LORAX [Suspect]
     Active Substance: LORAZEPAM
     Indication: PAIN
  4. ARADOIS [Concomitant]
     Active Substance: LOSARTAN POTASSIUM
     Dosage: UNK

REACTIONS (8)
  - Nervousness [Recovered/Resolved]
  - Incorrect product administration duration [Unknown]
  - Cataract [Recovered/Resolved]
  - Gastritis [Not Recovered/Not Resolved]
  - Drug dependence [Not Recovered/Not Resolved]
  - Drug ineffective [Recovered/Resolved]
  - Eye haemorrhage [Recovered/Resolved]
  - Anxiety [Recovered/Resolved]

NARRATIVE: CASE EVENT DATE: 2010
